FAERS Safety Report 10962163 (Version 3)
Quarter: 2015Q2

REPORT INFORMATION
  Report Type: Spontaneous
  Country: US (occurrence: US)
  Receive Date: 20150327
  Receipt Date: 20150521
  Transmission Date: 20150821
  Serious: Yes (Other)
  Sender: FDA-Public Use
  Company Number: US-JNJFOC-20150312824

PATIENT
  Age: 38 Year
  Sex: Male
  Weight: 124.74 kg

DRUGS (6)
  1. GLIPIZIDE ER [Concomitant]
     Active Substance: GLIPIZIDE
     Indication: DIABETES MELLITUS
     Route: 065
  2. LISINOPRIL. [Concomitant]
     Active Substance: LISINOPRIL
     Indication: BLOOD PRESSURE
     Route: 065
  3. HALDOL DECANOATE [Suspect]
     Active Substance: HALOPERIDOL DECANOATE
     Indication: SCHIZOAFFECTIVE DISORDER
     Route: 030
     Dates: start: 20150303
  4. GABAPENTIN. [Concomitant]
     Active Substance: GABAPENTIN
     Indication: PAIN
     Route: 065
     Dates: start: 20140312
  5. LEXAPRO [Concomitant]
     Active Substance: ESCITALOPRAM OXALATE
     Indication: DEPRESSION
     Route: 065
  6. METFORMIN [Concomitant]
     Active Substance: METFORMIN HYDROCHLORIDE
     Indication: DIABETES MELLITUS
     Route: 065

REACTIONS (3)
  - Injection site infection [Recovering/Resolving]
  - Injection site rash [Recovered/Resolved]
  - Injection site nodule [Recovered/Resolved]

NARRATIVE: CASE EVENT DATE: 2015
